FAERS Safety Report 20320112 (Version 1)
Quarter: 2022Q1

REPORT INFORMATION
  Report Type: Spontaneous
  Country: US (occurrence: None)
  Receive Date: 20220111
  Receipt Date: 20220111
  Transmission Date: 20220424
  Serious: No
  Sender: FDA-Public Use
  Company Number: US-ROCHE-2854874

PATIENT
  Sex: Female

DRUGS (1)
  1. RITUXAN [Suspect]
     Active Substance: RITUXIMAB
     Indication: Rheumatoid arthritis
     Dosage: WEEK 0 AND 2, THEN EVERY 4 MONTHS; FORM STRENGTH: 10 MG/ML
     Route: 041
     Dates: start: 202105

REACTIONS (1)
  - Fatigue [Unknown]
